FAERS Safety Report 17680140 (Version 1)
Quarter: 2020Q2

REPORT INFORMATION
  Report Type: Report from Study
  Country: None (occurrence: US)
  Receive Date: 20200417
  Receipt Date: 20200417
  Transmission Date: 20200714
  Serious: Yes (Other)
  Sender: FDA-Public Use
  Company Number: US-ABBVIE-19K-163-3162130-00

PATIENT
  Age: 82 Year
  Sex: Female

DRUGS (7)
  1. IMBRUVICA [Suspect]
     Active Substance: IBRUTINIB
     Dosage: 420 MG, QD
     Route: 048
  2. IMBRUVICA [Suspect]
     Active Substance: IBRUTINIB
     Dosage: 140 MG, BID
     Route: 048
  3. IMBRUVICA [Suspect]
     Active Substance: IBRUTINIB
     Dosage: 280 MG, QD
     Route: 048
     Dates: start: 20180524, end: 20190125
  4. IMBRUVICA [Suspect]
     Active Substance: IBRUTINIB
     Indication: WALDENSTROM^S MACROGLOBULINAEMIA
     Dosage: 140 MG, QD
     Route: 048
     Dates: start: 201803
  5. IMBRUVICA [Suspect]
     Active Substance: IBRUTINIB
     Indication: WALDENSTROM^S MACROGLOBULINAEMIA
     Dosage: 280 MG, QD
     Route: 048
  6. IMBRUVICA [Suspect]
     Active Substance: IBRUTINIB
     Route: 048
     Dates: start: 20180307, end: 20180503
  7. IMBRUVICA [Suspect]
     Active Substance: IBRUTINIB
     Route: 048
     Dates: start: 20190126

REACTIONS (4)
  - Basal cell carcinoma [Unknown]
  - Inappropriate schedule of product administration [Unknown]
  - Post procedural haemorrhage [Unknown]
  - Fatigue [Unknown]

NARRATIVE: CASE EVENT DATE: 201907
